FAERS Safety Report 4927959-8 (Version None)
Quarter: 2006Q1

REPORT INFORMATION
  Report Type: 
  Country: None (occurrence: None)
  Receive Date: 20060223
  Receipt Date: 20060210
  Transmission Date: 20060701
  Serious: Yes (Death, Life-Threatening)
  Sender: FDA-Public Use
  Company Number: 2006021359

PATIENT
  Age: 56 Year
  Sex: Female

DRUGS (10)
  1. NORVASC [Suspect]
     Indication: HYPERTENSION
     Dosage: 20 MG (10 MG, BID), ORAL
     Route: 048
     Dates: start: 20060101, end: 20060201
  2. CEFOPERAZONE SODIUM/SULBACTAM SODIUM [Concomitant]
  3. DOPAMINE HCL [Concomitant]
  4. DOBUTAMINE                     (DOBUTAMINE) [Concomitant]
  5. ISOSORBIDE DINIITRATE               (ISOSORBIDE DINITRATE) [Concomitant]
  6. FUROSEMIDE [Concomitant]
  7. BUMETANIDE [Concomitant]
  8. URAPIDIL HYDROCHLORIDE                  (URAPIDIL HYDROCHLORIDE) [Concomitant]
  9. NIFEDIPINE [Concomitant]
  10. CLOZAPINE [Concomitant]

REACTIONS (1)
  - RESPIRATORY ARREST [None]
